FAERS Safety Report 25145065 (Version 2)
Quarter: 2025Q2

REPORT INFORMATION
  Report Type: Spontaneous
  Country: JP (occurrence: JP)
  Receive Date: 20250401
  Receipt Date: 20250422
  Transmission Date: 20250717
  Serious: Yes (Other)
  Sender: BAYER HEALTHCARE PHARMACEUTICALS INC.
  Company Number: JP-BAYER-2025A043153

PATIENT
  Age: 8 Decade
  Sex: Male
  Weight: 60 kg

DRUGS (8)
  1. KERENDIA [Suspect]
     Active Substance: FINERENONE
     Indication: Diabetic nephropathy
     Dosage: DAILY DOSE 10 MG
  2. EZETIMIBE [Concomitant]
     Active Substance: EZETIMIBE
     Indication: Product used for unknown indication
     Dosage: DAILY DOSE 10 MG
  3. SACUBITRIL\VALSARTAN [Concomitant]
     Active Substance: SACUBITRIL\VALSARTAN
     Indication: Product used for unknown indication
     Dosage: DAILY DOSE 200 MG
  4. AMLODIPINE [Concomitant]
     Active Substance: AMLODIPINE BESYLATE
     Indication: Product used for unknown indication
     Dosage: DAILY DOSE 5 MG
  5. CANAGLIFLOZIN [Concomitant]
     Active Substance: CANAGLIFLOZIN
     Indication: Product used for unknown indication
  6. LINAGLIPTIN [Concomitant]
     Active Substance: LINAGLIPTIN
     Indication: Product used for unknown indication
  7. CYCLOSPORINE [Concomitant]
     Active Substance: CYCLOSPORINE
     Indication: Diabetic nephropathy
     Dosage: DAILY DOSE 100 MG
  8. PREDNISOLONE [Concomitant]
     Active Substance: PREDNISOLONE
     Indication: Diabetic nephropathy
     Dosage: DAILY DOSE 30 MG

REACTIONS (5)
  - Glomerulonephritis membranous [None]
  - Protein urine present [Unknown]
  - Urinary occult blood [None]
  - Oedema peripheral [None]
  - Blood albumin decreased [None]
